FAERS Safety Report 23039150 (Version 1)
Quarter: 2023Q4

REPORT INFORMATION
  Report Type: Spontaneous
  Country: US (occurrence: None)
  Receive Date: 20231006
  Receipt Date: 20231006
  Transmission Date: 20240110
  Serious: Yes (Hospitalization)
  Sender: FDA-Public Use
  Company Number: None

PATIENT
  Age: 73 Year
  Sex: Female
  Weight: 70.65 kg

DRUGS (7)
  1. OZEMPIC [Suspect]
     Active Substance: SEMAGLUTIDE
     Indication: Weight decreased
     Dosage: OTHER QUANTITY : 4 INJECTION(S);?OTHER FREQUENCY : WEEKLY;?
     Route: 058
     Dates: start: 20230321, end: 20230812
  2. FENTANYL [Suspect]
     Active Substance: FENTANYL
  3. MORPHINE [Suspect]
     Active Substance: MORPHINE
  4. AMLODIPINE [Concomitant]
     Active Substance: AMLODIPINE BESYLATE
  5. LOSARTAN [Concomitant]
     Active Substance: LOSARTAN
  6. statins Blood thinners [Concomitant]
  7. LOW DOSE ASPRIN [Concomitant]
     Active Substance: ASPIRIN

REACTIONS (6)
  - Diverticulitis [None]
  - Abdominal pain [None]
  - Vomiting [None]
  - Gastrointestinal infection [None]
  - Cystitis [None]
  - Proctalgia [None]

NARRATIVE: CASE EVENT DATE: 20230826
